FAERS Safety Report 5015683-5 (Version None)
Quarter: 2006Q2

REPORT INFORMATION
  Report Type: 
  Country: None (occurrence: None)
  Receive Date: 20060601
  Receipt Date: 20060523
  Transmission Date: 20061013
  Serious: Yes (Other)
  Sender: FDA-Public Use
  Company Number: 2006JP001462

PATIENT
  Age: 30 Year
  Sex: Female

DRUGS (2)
  1. CEFAMEZIN [Suspect]
     Indication: APPENDICITIS
     Dosage: .5MG PER DAY
     Route: 030
     Dates: start: 20060508, end: 20060508
  2. ADALAT [Concomitant]
     Indication: DRUG USE FOR UNKNOWN INDICATION
     Route: 065

REACTIONS (6)
  - BLOOD PRESSURE DECREASED [None]
  - CONVULSION [None]
  - DEPRESSED LEVEL OF CONSCIOUSNESS [None]
  - PYREXIA [None]
  - SHOCK [None]
  - SYNCOPE VASOVAGAL [None]
